FAERS Safety Report 19408895 (Version 1)
Quarter: 2021Q2

REPORT INFORMATION
  Report Type: Spontaneous
  Country: CH (occurrence: CH)
  Receive Date: 20210613
  Receipt Date: 20210613
  Transmission Date: 20210717
  Serious: Yes (Hospitalization, Other)
  Sender: FDA-Public Use
  Company Number: CH-LUPIN PHARMACEUTICALS INC.-2021-09612

PATIENT
  Sex: Female
  Weight: 2.34 kg

DRUGS (8)
  1. CEFTRIAXONE. [Suspect]
     Active Substance: CEFTRIAXONE
     Indication: PNEUMONIA
     Dosage: UNK, RECEIVED ONE DOSE
     Route: 064
  2. AZITHROMYCIN ANHYDROUS. [Suspect]
     Active Substance: AZITHROMYCIN ANHYDROUS
     Indication: PNEUMONIA
     Dosage: 500 MILLIGRAM, QD
     Route: 064
  3. PYRIMETHAMINE;SULFADIAZINE [Suspect]
     Active Substance: PYRIMETHAMINE\SULFADIAZINE
     Indication: TOXOPLASMOSIS
     Dosage: 1 DOSAGE FORM, QD, PYRIMETHAMINE 25 MG PER DAY, SULFADIAZINE 4 G
     Route: 064
  4. CO?AMOXICILLIN [Suspect]
     Active Substance: AMOXICILLIN\CLAVULANATE POTASSIUM
     Indication: PNEUMONIA
     Dosage: 2.2 GRAM, TID
     Route: 064
  5. FOLINIC ACID [Suspect]
     Active Substance: LEUCOVORIN
     Indication: TOXOPLASMOSIS
     Dosage: UNK
     Route: 064
  6. CEFTRIAXONE. [Suspect]
     Active Substance: CEFTRIAXONE
     Indication: TOXOPLASMOSIS
  7. AZITHROMYCIN ANHYDROUS. [Suspect]
     Active Substance: AZITHROMYCIN ANHYDROUS
     Indication: TOXOPLASMOSIS
  8. SPIRAMYCIN [Suspect]
     Active Substance: SPIRAMYCIN
     Indication: TOXOPLASMOSIS
     Dosage: UNK UNK, QD, 9 MIO IU PER DAY
     Route: 064

REACTIONS (4)
  - Low birth weight baby [Unknown]
  - Foetal exposure during pregnancy [Unknown]
  - Pulmonary hypertension [Unknown]
  - Foetal heart rate abnormal [Unknown]
